FAERS Safety Report 6409141-0 (Version None)
Quarter: 2009Q4

REPORT INFORMATION
  Report Type: 
  Country: None (occurrence: None)
  Receive Date: 20091021
  Receipt Date: 20091008
  Transmission Date: 20100525
  Serious: Yes (Other)
  Sender: FDA-Public Use
  Company Number: PHHY2009GB02220

PATIENT
  Sex: Male

DRUGS (3)
  1. EXJADE [Suspect]
     Indication: IRON OVERLOAD
     Dosage: 1500 MG/DAY
     Dates: start: 20090104
  2. EXJADE [Suspect]
     Dosage: 500 MG/DAY
  3. EXJADE [Suspect]
     Dosage: 1500 MG/DAY
     Dates: end: 20090901

REACTIONS (3)
  - PANIC ATTACK [None]
  - SLEEP APNOEA SYNDROME [None]
  - SLEEP DISORDER [None]
